FAERS Safety Report 9805527 (Version 1)
Quarter: 2014Q1

REPORT INFORMATION
  Report Type: Spontaneous
  Country: US (occurrence: None)
  Receive Date: 20140108
  Receipt Date: 20140108
  Transmission Date: 20141002
  Serious: Yes (Other)
  Sender: FDA-Public Use
  Company Number: None

PATIENT
  Age: 60 Year
  Sex: Female
  Weight: 81.4 kg

DRUGS (4)
  1. TRIAMTERENE.HCTZ 37.5/25MG [Suspect]
     Indication: HYPERTENSION
     Route: 048
     Dates: start: 20121116, end: 20131226
  2. METFORMIN [Concomitant]
  3. LISINOPRIL [Concomitant]
  4. NOVOLOG INSULIN PEN [Concomitant]

REACTIONS (1)
  - Muscle spasms [None]
